FAERS Safety Report 5365445-4 (Version None)
Quarter: 2007Q2

REPORT INFORMATION
  Report Type: 
  Country: None (occurrence: None)
  Receive Date: 20070621
  Receipt Date: 20070613
  Transmission Date: 20071010
  Serious: Yes (Hospitalization)
  Sender: FDA-Public Use
  Company Number: CM-MERCK-0706USA02249

PATIENT
  Age: 40 Year
  Sex: Male
  Weight: 34 kg

DRUGS (1)
  1. STROMECTOL [Suspect]
     Route: 048
     Dates: start: 20070524

REACTIONS (2)
  - DYSPNOEA [None]
  - FACE OEDEMA [None]
